FAERS Safety Report 11199575 (Version 1)
Quarter: 2015Q2

REPORT INFORMATION
  Report Type: Spontaneous
  Country: US (occurrence: None)
  Receive Date: 20150616
  Receipt Date: 20150616
  Transmission Date: 20150821
  Serious: Yes (Disabling)
  Sender: FDA-Public Use
  Company Number: None

PATIENT
  Age: 84 Year
  Sex: Female
  Weight: 81.65 kg

DRUGS (8)
  1. METHOTREXATE 2.5MG [Suspect]
     Active Substance: METHOTREXATE
     Indication: RHEUMATOID ARTHRITIS
     Dosage: 3 PILLS
     Route: 048
     Dates: start: 20130101, end: 20150226
  2. IBUPROFEN. [Concomitant]
     Active Substance: IBUPROFEN
  3. ASPIRIN. [Concomitant]
     Active Substance: ASPIRIN
  4. ZANTAC [Concomitant]
     Active Substance: RANITIDINE HYDROCHLORIDE
  5. FISH OIL [Concomitant]
     Active Substance: FISH OIL
  6. THYROID [Concomitant]
     Active Substance: LEVOTHYROXINE\LIOTHYRONINE
  7. CALTRATE [Concomitant]
     Active Substance: CALCIUM CARBONATE
  8. MACULAR ASSIST [Concomitant]

REACTIONS (1)
  - Cerebral ventricle dilatation [None]

NARRATIVE: CASE EVENT DATE: 20150201
